FAERS Safety Report 14548442 (Version 12)
Quarter: 2018Q3

REPORT INFORMATION
  Report Type: Report from Study
  Country: US (occurrence: US)
  Receive Date: 20180219
  Receipt Date: 20180919
  Transmission Date: 20181010
  Serious: Yes (Hospitalization)
  Sender: FDA-Public Use
  Company Number: US-ACTELION-A-NJ2018-166647

PATIENT
  Age: 71 Year
  Sex: Female
  Weight: 57.6 kg

DRUGS (7)
  1. VELETRI [Suspect]
     Active Substance: EPOPROSTENOL
     Dosage: 23 NG/KG, PER MIN
     Route: 042
  2. ORENITRAM [Concomitant]
     Active Substance: TREPROSTINIL
  3. VELETRI [Suspect]
     Active Substance: EPOPROSTENOL
     Indication: PULMONARY HYPERTENSION
     Dosage: 19 NG/KG, PER MIN
     Route: 042
  4. SILDENAFIL CITRATE. [Concomitant]
     Active Substance: SILDENAFIL CITRATE
  5. VELETRI [Suspect]
     Active Substance: EPOPROSTENOL
     Dosage: 26 NG/KG, PER MIN
     Route: 042
  6. LETAIRIS [Concomitant]
     Active Substance: AMBRISENTAN
  7. VELETRI [Suspect]
     Active Substance: EPOPROSTENOL
     Dosage: 30 NG/KG, PER MIN
     Route: 042

REACTIONS (27)
  - Headache [Unknown]
  - Myalgia [Unknown]
  - Catheter site cellulitis [Unknown]
  - Constipation [Unknown]
  - Nausea [Unknown]
  - Decreased appetite [Unknown]
  - Chest discomfort [Unknown]
  - Asthenia [Unknown]
  - Application site pruritus [Unknown]
  - Dysuria [Unknown]
  - Cellulitis [Unknown]
  - Erythema [Unknown]
  - Catheter site rash [Unknown]
  - Diarrhoea [Recovering/Resolving]
  - Abdominal pain [Unknown]
  - Condition aggravated [Unknown]
  - Insomnia [Unknown]
  - Blood potassium decreased [Unknown]
  - Dyspnoea [Unknown]
  - Hot flush [Recovering/Resolving]
  - Catheter site pain [Unknown]
  - Arthralgia [Unknown]
  - Weight decreased [Unknown]
  - Drug intolerance [Unknown]
  - Swelling [Unknown]
  - Pain in jaw [Unknown]
  - Unevaluable event [Unknown]
